FAERS Safety Report 24617926 (Version 3)
Quarter: 2025Q1

REPORT INFORMATION
  Report Type: Report from Study
  Country: US (occurrence: US)
  Receive Date: 20241114
  Receipt Date: 20250212
  Transmission Date: 20250408
  Serious: No
  Sender: ABBVIE
  Company Number: US-ABBVIE-5940943

PATIENT
  Sex: Female
  Weight: 62.595 kg

DRUGS (1)
  1. LINZESS [Suspect]
     Active Substance: LINACLOTIDE
     Indication: Constipation
     Dosage: FORM STRENGTH: 72 MG
     Route: 048
     Dates: start: 2020

REACTIONS (1)
  - Therapeutic product effect delayed [Unknown]
